FAERS Safety Report 7039244-1 (Version None)
Quarter: 2010Q4

REPORT INFORMATION
  Report Type: 
  Country: None (occurrence: None)
  Receive Date: 20101012
  Receipt Date: 20101005
  Transmission Date: 20110411
  Serious: Yes (Other)
  Sender: FDA-Public Use
  Company Number: US-PFIZER INC-2010126830

PATIENT
  Age: 76 Year
  Sex: Female

DRUGS (3)
  1. NORVASC [Suspect]
  2. MULTAQ [Suspect]
  3. PLENDIL [Suspect]

REACTIONS (2)
  - OEDEMA [None]
  - WEIGHT INCREASED [None]
